FAERS Safety Report 23452159 (Version 9)
Quarter: 2025Q1

REPORT INFORMATION
  Report Type: Spontaneous
  Country: DE (occurrence: DE)
  Receive Date: 20240129
  Receipt Date: 20250110
  Transmission Date: 20250409
  Serious: Yes (Life-Threatening, Hospitalization, Other)
  Sender: MYLAN
  Company Number: DE-UCBSA-2024001123

PATIENT
  Age: 75 Year
  Sex: Female

DRUGS (9)
  1. METHOTREXATE [Interacting]
     Active Substance: METHOTREXATE
     Indication: Rheumatoid arthritis
     Dosage: 10 MILLIGRAM PER WEEK
     Route: 065
  2. METHOTREXATE [Interacting]
     Active Substance: METHOTREXATE
     Dosage: 7.5 MILLIGRAM, QW
     Route: 065
  3. METHOTREXATE [Interacting]
     Active Substance: METHOTREXATE
     Dosage: 10 MILLIGRAM PER WEEK
     Route: 065
  4. TORSEMIDE [Interacting]
     Active Substance: TORSEMIDE
     Indication: Diuretic therapy
     Route: 065
  5. LEVETIRACETAM [Interacting]
     Active Substance: LEVETIRACETAM
     Indication: Drug therapy
     Route: 065
  6. PANTOPRAZOLE [Interacting]
     Active Substance: PANTOPRAZOLE
     Indication: Product used for unknown indication
     Route: 065
  7. HYDROCHLOROTHIAZIDE [Concomitant]
     Active Substance: HYDROCHLOROTHIAZIDE
     Indication: Diuretic therapy
     Route: 065
  8. IRBESARTAN [Concomitant]
     Active Substance: IRBESARTAN
     Indication: Product used for unknown indication
     Route: 065
  9. INDOMETHACIN [Concomitant]
     Active Substance: INDOMETHACIN
     Indication: Product used for unknown indication
     Route: 065

REACTIONS (10)
  - Mucosal inflammation [Recovered/Resolved]
  - Myelosuppression [Recovered/Resolved]
  - Thrombocytopenia [Recovered/Resolved]
  - Leukopenia [Recovered/Resolved]
  - Sepsis [Recovered/Resolved]
  - Toxicity to various agents [Recovered/Resolved]
  - Drug interaction [Unknown]
  - Disease risk factor [Unknown]
  - Drug abuse [Unknown]
  - Overdose [Unknown]
